FAERS Safety Report 8463204-7 (Version None)
Quarter: 2012Q2

REPORT INFORMATION
  Report Type: 
  Country: None (occurrence: None)
  Receive Date: 20120625
  Receipt Date: 20120620
  Transmission Date: 20120825
  Serious: Yes (Hospitalization)
  Sender: FDA-Public Use
  Company Number: IT-PFIZER INC-2012149412

PATIENT
  Age: 58 Year
  Sex: Male

DRUGS (3)
  1. VENLAFAXINE HYDROCHLORIDE [Concomitant]
     Indication: DEPRESSION
     Dosage: 75 MG
     Route: 048
     Dates: start: 20080527, end: 20120526
  2. XANAX [Suspect]
     Indication: DEPRESSION
     Dosage: 0.5 MG, 1X/DAY
     Route: 048
     Dates: start: 20120326, end: 20120526
  3. LORMETAZEPAM [Concomitant]
     Dosage: 20 GTT, UNK
     Route: 048

REACTIONS (2)
  - ABDOMINAL PAIN [None]
  - COLITIS [None]
